FAERS Safety Report 8026008-5 (Version None)
Quarter: 2012Q1

REPORT INFORMATION
  Report Type: 
  Country: None (occurrence: None)
  Receive Date: 20120105
  Receipt Date: 20110721
  Transmission Date: 20120608
  Serious: No
  Sender: FDA-Public Use
  Company Number: US-ABBOTT-11P-163-0840659-00

PATIENT
  Sex: Female
  Weight: 81.72 kg

DRUGS (4)
  1. SYNTHROID [Suspect]
     Indication: HYPOTHYROIDISM
     Route: 048
     Dates: start: 20081101, end: 20110519
  2. SYNTHROID [Suspect]
     Dosage: SAMPLES FROM OFFICE.
     Route: 048
     Dates: start: 20110519, end: 20110713
  3. SYNTHROID [Suspect]
     Dosage: PHARMACY PRESCRIPTION
     Route: 048
     Dates: start: 20110713
  4. PAXIL [Concomitant]
     Indication: DEPRESSION
     Route: 048

REACTIONS (4)
  - PARAESTHESIA [None]
  - SENSORY DISTURBANCE [None]
  - NAUSEA [None]
  - DIZZINESS [None]
